FAERS Safety Report 9516500 (Version 1)
Quarter: 2013Q4

REPORT INFORMATION
  Report Type: Spontaneous
  Country: US (occurrence: None)
  Receive Date: 20130910
  Receipt Date: 20130910
  Transmission Date: 20140711
  Serious: Yes (Death)
  Sender: FDA-Public Use
  Company Number: None

PATIENT
  Age: 67 Year
  Sex: Male
  Weight: 63.2 kg

DRUGS (4)
  1. CALCIUM LEUCOVORIN [Suspect]
     Indication: PANCREATIC CARCINOMA METASTATIC
     Dosage: Q2 WEEKS X 6 CYCLES IV
     Route: 042
     Dates: start: 20130528, end: 20130806
  2. 5-FU [Suspect]
  3. OXALIPLATIN [Suspect]
  4. ABRAXANE [Suspect]

REACTIONS (2)
  - Pancreatic carcinoma metastatic [None]
  - Neoplasm progression [None]
